FAERS Safety Report 5910203-2 (Version None)
Quarter: 2008Q4

REPORT INFORMATION
  Report Type: 
  Country: None (occurrence: None)
  Receive Date: 20081007
  Receipt Date: 20071009
  Transmission Date: 20090506
  Serious: No
  Sender: FDA-Public Use
  Company Number: US-ASTRAZENECA-2007UW23496

PATIENT
  Age: 80 Year
  Sex: Female
  Weight: 72.1 kg

DRUGS (5)
  1. ARIMIDEX [Suspect]
     Indication: BREAST CANCER
     Route: 048
     Dates: start: 20070501
  2. ACETYLSALICYLIC ACID SRT [Concomitant]
  3. ATIVAN [Concomitant]
     Indication: ANXIETY
     Route: 048
     Dates: start: 20070701
  4. FLONASE [Concomitant]
  5. PREVACID [Concomitant]

REACTIONS (3)
  - BRADYPHRENIA [None]
  - DIZZINESS [None]
  - LACRIMATION INCREASED [None]
